FAERS Safety Report 12538373 (Version 1)
Quarter: 2016Q3

REPORT INFORMATION
  Report Type: Report from Study
  Country: PL (occurrence: PL)
  Receive Date: 20160707
  Receipt Date: 20160707
  Transmission Date: 20161109
  Serious: Yes (Death)
  Sender: FDA-Public Use
  Company Number: PHHO2012PL021040

PATIENT
  Age: 59 Year
  Sex: Male
  Weight: 98 kg

DRUGS (21)
  1. BENDAMUSTINE [Suspect]
     Active Substance: BENDAMUSTINE
     Indication: CHRONIC LYMPHOCYTIC LEUKAEMIA
     Dosage: 70 MG/M2, CYCLIC
     Route: 042
     Dates: start: 20120509, end: 20120607
  2. LOSEC [Concomitant]
     Active Substance: OMEPRAZOLE
     Indication: GASTRITIS PROPHYLAXIS
     Dosage: 40 MG, QD
     Route: 042
     Dates: start: 20120627, end: 20120724
  3. KETONAL [Concomitant]
     Active Substance: KETOPROFEN
     Indication: PAIN
     Dosage: 100 MG, PRN
     Route: 042
     Dates: start: 20120625, end: 20120709
  4. FUROSEMID [Concomitant]
     Active Substance: FUROSEMIDE
     Dosage: 100 MG, ONCE/SINGLE
     Route: 042
     Dates: start: 20120715, end: 20120715
  5. PARACETAMOL [Concomitant]
     Active Substance: ACETAMINOPHEN
     Indication: PROPHYLAXIS
     Dosage: 1000 MG, ONCE/SINGLE
     Route: 042
     Dates: start: 20120723, end: 20120723
  6. OFATUMUMAB [Suspect]
     Active Substance: OFATUMUMAB
     Indication: CHRONIC LYMPHOCYTIC LEUKAEMIA
     Dosage: CYCLIC
     Route: 042
     Dates: start: 20120509, end: 20120606
  7. MILURIT [Concomitant]
     Active Substance: ALLOPURINOL
     Indication: PROPHYLAXIS
     Dosage: 300 MG, QD
     Route: 048
     Dates: start: 20120706, end: 20120724
  8. THIOCODIN [Concomitant]
     Indication: ANTITUSSIVE THERAPY
     Dosage: 630 MG, ONCE/SINGLE
     Route: 048
     Dates: start: 20120723, end: 20120723
  9. HYDROCORTISON [Concomitant]
     Active Substance: HYDROCORTISONE
     Indication: PROPHYLAXIS
     Dosage: 200 MG, ONCE/SINGLE
     Route: 042
     Dates: start: 20120722, end: 20120722
  10. KETONAL [Concomitant]
     Active Substance: KETOPROFEN
     Dosage: 100 MG, BID
     Route: 042
     Dates: start: 20120709, end: 20120724
  11. FUROSEMID [Concomitant]
     Active Substance: FUROSEMIDE
     Dosage: 60 MG, BID
     Route: 042
     Dates: start: 20120713, end: 20120714
  12. FUROSEMID [Concomitant]
     Active Substance: FUROSEMIDE
     Dosage: 40 MG, BID
     Route: 042
     Dates: start: 20120629, end: 20120709
  13. MGSO4 [Concomitant]
     Active Substance: MAGNESIUM SULFATE
     Indication: PRODUCT USED FOR UNKNOWN INDICATION
     Dosage: 2 G, ONCE/SINGLE
     Route: 042
     Dates: start: 20120723, end: 20120723
  14. FUROSEMID [Concomitant]
     Active Substance: FUROSEMIDE
     Indication: DIURETIC THERAPY
     Dosage: 40 MG, BID
     Route: 042
     Dates: start: 20120629, end: 20120709
  15. CIPRONEX [Concomitant]
     Active Substance: CIPROFLOXACIN
     Indication: PRODUCT USED FOR UNKNOWN INDICATION
     Dosage: 500 MG, BID
     Route: 048
     Dates: start: 20120710, end: 20120714
  16. PARACETAMOL [Concomitant]
     Active Substance: ACETAMINOPHEN
     Indication: PROPHYLAXIS
     Dosage: 1000 MG, ONCE/SINGLE
     Route: 042
     Dates: start: 20120724, end: 20120724
  17. OXAZEPAM. [Concomitant]
     Active Substance: OXAZEPAM
     Indication: SEDATION
     Dosage: 10 MG, ONCE/SINGLE
     Route: 048
     Dates: start: 20120722, end: 20120722
  18. THEOPHYLLINUM [Concomitant]
     Indication: INHALATION THERAPY
     Dosage: 250 MG, ONCE/SINGLE
     Route: 042
     Dates: start: 20120723, end: 20120723
  19. HYDROCORTISON [Concomitant]
     Active Substance: HYDROCORTISONE
     Indication: PROPHYLAXIS
     Dosage: 100 MG, ONCE/SINGLE
     Route: 042
     Dates: start: 20120723, end: 20120724
  20. KALIPOZ [Concomitant]
     Active Substance: POTASSIUM CHLORIDE
     Indication: MINERAL SUPPLEMENTATION
     Dosage: 1 DF, QD
     Route: 048
     Dates: start: 20120707, end: 20120712
  21. FUROSEMID [Concomitant]
     Active Substance: FUROSEMIDE
     Dosage: 60 MG, QD
     Route: 042
     Dates: start: 20120716, end: 20120724

REACTIONS (2)
  - Pneumonia [Fatal]
  - Haemolytic anaemia [Fatal]

NARRATIVE: CASE EVENT DATE: 20120622
